FAERS Safety Report 20484823 (Version 4)
Quarter: 2022Q2

REPORT INFORMATION
  Report Type: Spontaneous
  Country: JP (occurrence: JP)
  Receive Date: 20220217
  Receipt Date: 20220406
  Transmission Date: 20220721
  Serious: Yes (Hospitalization)
  Sender: FDA-Public Use
  Company Number: JP-MTPC-MTPC2022-0003612

PATIENT
  Age: 69 Year
  Sex: Male

DRUGS (11)
  1. REMICADE [Suspect]
     Active Substance: INFLIXIMAB
     Indication: Psoriasis
     Dosage: 300 MILLIGRAM, QD?REMICADE FOR I.V. INFUSION100
     Route: 041
     Dates: start: 20140726, end: 20140726
  2. REMICADE [Suspect]
     Active Substance: INFLIXIMAB
     Indication: Pustular psoriasis
     Dosage: 270 MILLIGRAM, QD
     Route: 041
     Dates: start: 20140811, end: 20140811
  3. REMICADE [Suspect]
     Active Substance: INFLIXIMAB
     Dosage: 250 MILLIGRAM, QD
     Route: 041
     Dates: start: 20140926, end: 20140926
  4. METHOTREXATE [Suspect]
     Active Substance: METHOTREXATE
     Indication: Psoriasis
     Dosage: 12 MILLIGRAM, 1/WEEK
     Route: 048
     Dates: start: 20140812
  5. PREDONINE [Suspect]
     Active Substance: PREDNISOLONE
     Indication: Psoriasis
     Dosage: 15 MILLIGRAM, QD
     Route: 048
     Dates: start: 20140724
  6. PENTAMIDINE ISETHIONATE [Concomitant]
     Active Substance: PENTAMIDINE ISETHIONATE
     Indication: Antifungal prophylaxis
     Route: 055
  7. CELESTAMINE [BETAMETHASONE;LORATADINE] [Concomitant]
  8. LEVOFLOXACIN [Concomitant]
     Active Substance: LEVOFLOXACIN
  9. AMLODIPINE [Concomitant]
     Active Substance: AMLODIPINE BESYLATE
  10. OLMESARTAN [Concomitant]
     Active Substance: OLMESARTAN
  11. SITAGLIPTIN [Concomitant]
     Active Substance: SITAGLIPTIN

REACTIONS (1)
  - Pneumocystis jirovecii pneumonia [Recovered/Resolved]

NARRATIVE: CASE EVENT DATE: 20140903
